FAERS Safety Report 6996440-7 (Version None)
Quarter: 2010Q3

REPORT INFORMATION
  Report Type: 
  Country: None (occurrence: None)
  Receive Date: 20100918
  Receipt Date: 20090408
  Transmission Date: 20110219
  Serious: No
  Sender: FDA-Public Use
  Company Number: US-WYE-H08471409

PATIENT
  Age: 74 Year
  Sex: Male
  Weight: 72.64 kg

DRUGS (3)
  1. CORDARONE [Suspect]
     Indication: ATRIAL FIBRILLATION
     Dosage: 400 MG A DAY
     Route: 048
     Dates: start: 20090217
  2. CORDARONE [Suspect]
     Dosage: DOSE AND FREQUENCY NOT SPECIFIED
     Route: 042
  3. WARFARIN SODIUM [Concomitant]

REACTIONS (1)
  - URINE COLOUR ABNORMAL [None]
